FAERS Safety Report 24758355 (Version 4)
Quarter: 2025Q4

REPORT INFORMATION
  Report Type: Spontaneous
  Country: US (occurrence: US)
  Receive Date: 20241220
  Receipt Date: 20251030
  Transmission Date: 20260118
  Serious: No
  Sender: UCB
  Company Number: US-UCBSA-2024053077

PATIENT
  Age: 70 Year
  Weight: 68.03 kg

DRUGS (1)
  1. BIMZELX [Suspect]
     Active Substance: BIMEKIZUMAB-BKZX
     Indication: Psoriasis
     Dosage: 320 MILLIGRAM, EV 4 WEEKS

REACTIONS (5)
  - Erythema [Unknown]
  - Pruritus [Unknown]
  - Injection site pruritus [Unknown]
  - Injection site erythema [Unknown]
  - Product availability issue [Unknown]
